FAERS Safety Report 11499989 (Version 1)
Quarter: 2015Q3

REPORT INFORMATION
  Report Type: Spontaneous
  Country: MX (occurrence: None)
  Receive Date: 20150910
  Receipt Date: 20150910
  Transmission Date: 20151125
  Serious: Yes (Life-Threatening, Hospitalization)
  Sender: FDA-Public Use
  Company Number: MX-2015-3762

PATIENT
  Sex: Female

DRUGS (1)
  1. NAVELBINE [Suspect]
     Active Substance: VINORELBINE TARTRATE
     Indication: BREAST CANCER
     Dosage: 60 MG/M2 CYCLIC
     Route: 048
     Dates: start: 201508

REACTIONS (2)
  - Pleural effusion [None]
  - Neutropenia [None]

NARRATIVE: CASE EVENT DATE: 201508
